FAERS Safety Report 8825733 (Version 3)
Quarter: 2013Q3

REPORT INFORMATION
  Report Type: Spontaneous
  Country: JP (occurrence: JP)
  Receive Date: 20121004
  Receipt Date: 20130722
  Transmission Date: 20140515
  Serious: Yes (Hospitalization)
  Sender: FDA-Public Use
  Company Number: JP-ABBOTT-12P-087-0981551-00

PATIENT
  Age: 76 Year
  Sex: Female
  Weight: 47 kg

DRUGS (3)
  1. CLARITH [Suspect]
     Indication: HELICOBACTER INFECTION
     Route: 048
     Dates: start: 20120901, end: 20120907
  2. TAKEPRON [Suspect]
     Indication: HELICOBACTER INFECTION
     Route: 048
     Dates: start: 20120901, end: 20120907
  3. SAWACILLIN [Suspect]
     Indication: HELICOBACTER INFECTION
     Route: 048
     Dates: start: 20120901, end: 20120907

REACTIONS (1)
  - Drug-induced liver injury [Recovering/Resolving]
